FAERS Safety Report 18730609 (Version 5)
Quarter: 2023Q2

REPORT INFORMATION
  Report Type: Other
  Country: GB (occurrence: None)
  Receive Date: 20210112
  Receipt Date: 20230406
  Transmission Date: 20230721
  Serious: Yes (Other)
  Sender: FDA-Public Use
  Company Number: GB-ROCHE-2743593

PATIENT
  Age: 55 Year
  Sex: Female

DRUGS (5)
  1. TOCILIZUMAB [Suspect]
     Active Substance: TOCILIZUMAB
     Indication: Seronegative arthritis
     Route: 058
     Dates: start: 2019
  2. TOCILIZUMAB [Suspect]
     Active Substance: TOCILIZUMAB
     Dosage: EVERY 2 WEEKS
     Route: 058
     Dates: start: 2019
  3. GABAPENTIN [Concomitant]
     Active Substance: GABAPENTIN
  4. FOLIC ACID [Concomitant]
     Active Substance: FOLIC ACID
  5. METHOTREXATE [Concomitant]
     Active Substance: METHOTREXATE

REACTIONS (8)
  - Renal impairment [Unknown]
  - Liver function test increased [Unknown]
  - Inappropriate schedule of product administration [Unknown]
  - Infection [Unknown]
  - Joint swelling [Unknown]
  - Liver disorder [Unknown]
  - Injection site pain [Unknown]
  - Drug ineffective [Unknown]
